FAERS Safety Report 8129594-X (Version None)
Quarter: 2012Q1

REPORT INFORMATION
  Report Type: 
  Country: None (occurrence: None)
  Receive Date: 20120210
  Receipt Date: 20120206
  Transmission Date: 20120608
  Serious: Yes (Hospitalization)
  Sender: FDA-Public Use
  Company Number: US-GLAXOSMITHKLINE-A0964811A

PATIENT
  Age: 54 Year
  Sex: Female

DRUGS (2)
  1. LAMICTAL XR [Suspect]
     Indication: CONVULSION
     Dosage: 400MG PER DAY
     Route: 048
     Dates: start: 20120128
  2. NO CONCURRENT MEDICATION [Concomitant]

REACTIONS (4)
  - DIZZINESS [None]
  - NAUSEA [None]
  - DRUG ADMINISTRATION ERROR [None]
  - TREATMENT NONCOMPLIANCE [None]
